FAERS Safety Report 18803769 (Version 2)
Quarter: 2022Q1

REPORT INFORMATION
  Report Type: Spontaneous
  Country: US (occurrence: US)
  Receive Date: 20210129
  Receipt Date: 20220223
  Transmission Date: 20220423
  Serious: No
  Sender: FDA-Public Use
  Company Number: US-UCBSA-2020005594

PATIENT
  Age: 8 Year
  Sex: Male

DRUGS (4)
  1. LEVETIRACETAM [Suspect]
     Active Substance: LEVETIRACETAM
     Indication: Venous thrombosis
     Dosage: UNKNOWN DOSE
  2. LEVETIRACETAM [Suspect]
     Active Substance: LEVETIRACETAM
     Indication: Off label use
  3. AMOXICILLIN [Concomitant]
     Active Substance: AMOXICILLIN
     Indication: Ear infection
     Dosage: UNKNOWN DOSE
  4. HEPARIN [Concomitant]
     Active Substance: HEPARIN SODIUM
     Indication: Venous thrombosis
     Dosage: UNKNOWN DOSE

REACTIONS (1)
  - No adverse event [Unknown]
